FAERS Safety Report 6234204-2 (Version None)
Quarter: 2009Q2

REPORT INFORMATION
  Report Type: 
  Country: None (occurrence: None)
  Receive Date: 20090616
  Receipt Date: 20090605
  Transmission Date: 20091009
  Serious: Yes (Hospitalization)
  Sender: FDA-Public Use
  Company Number: 1000006235

PATIENT
  Age: 42 Year
  Sex: Female
  Weight: 80 kg

DRUGS (3)
  1. ESCITALOPRAM OXALATE [Suspect]
     Indication: DEPRESSION
     Dosage: 10 MG (10 MG, 1 IN 1 D), ORAL
     Route: 048
     Dates: start: 20090201, end: 20090315
  2. ZOPICLODURA (7.5 MILLIGRAM, TABLETS) [Suspect]
     Indication: SLEEP DISORDER
     Dosage: 7.5 MG (7.5 MG, 1 IN 1 D), ORAL
     Route: 048
     Dates: start: 20050101, end: 20090315
  3. DOLORMIN (400 MILLIGRAM, TABLETS) [Concomitant]

REACTIONS (23)
  - ACTIVATED PARTIAL THROMBOPLASTIN TIME PROLONGED [None]
  - ALANINE AMINOTRANSFERASE INCREASED [None]
  - ASPARTATE AMINOTRANSFERASE INCREASED [None]
  - BILIRUBIN CONJUGATED INCREASED [None]
  - BLOOD ALBUMIN DECREASED [None]
  - BLOOD ALKALINE PHOSPHATASE INCREASED [None]
  - BLOOD BILIRUBIN INCREASED [None]
  - BLOOD SODIUM DECREASED [None]
  - CHOLELITHIASIS [None]
  - GAMMA-GLUTAMYLTRANSFERASE INCREASED [None]
  - HEPATIC CIRRHOSIS [None]
  - HEPATIC FIBROSIS [None]
  - HEPATIC STEATOSIS [None]
  - HEPATOMEGALY [None]
  - HEPATOTOXICITY [None]
  - PANCREAS LIPOMATOSIS [None]
  - PROTHROMBIN TIME PROLONGED [None]
  - RED BLOOD CELL COUNT DECREASED [None]
  - REFLUX OESOPHAGITIS [None]
  - SPLENOMEGALY [None]
  - VARICES OESOPHAGEAL [None]
  - WAIST CIRCUMFERENCE INCREASED [None]
  - WHITE BLOOD CELL COUNT INCREASED [None]
